FAERS Safety Report 26192625 (Version 1)
Quarter: 2025Q4

REPORT INFORMATION
  Report Type: Spontaneous
  Country: AU (occurrence: AU)
  Receive Date: 20251223
  Receipt Date: 20251223
  Transmission Date: 20260117
  Serious: Yes (Other)
  Sender: GALPHARM INTERNATIONAL
  Company Number: AU-PERRIGO-25AU014667

PATIENT
  Sex: Female

DRUGS (1)
  1. NICOTINELL [Suspect]
     Active Substance: NICOTINE
     Indication: Product used for unknown indication
     Dosage: USING GUMS NON STOP 24/7 FOR THE PAST 19 YEARS
     Route: 002
     Dates: start: 2006

REACTIONS (5)
  - Overdose [Unknown]
  - Skin reaction [Unknown]
  - Gastrointestinal disorder [Unknown]
  - Product use issue [Unknown]
  - Wrong technique in product usage process [Unknown]
